FAERS Safety Report 7774572-3 (Version None)
Quarter: 2011Q3

REPORT INFORMATION
  Report Type: 
  Country: None (occurrence: None)
  Receive Date: 20110923
  Receipt Date: 20110914
  Transmission Date: 20111222
  Serious: Yes (Other)
  Sender: FDA-Public Use
  Company Number: CH-ROCHE-802518

PATIENT
  Age: 24 Year
  Sex: Male

DRUGS (11)
  1. IDARUBICIN HCL [Suspect]
     Route: 065
     Dates: start: 20110502
  2. CYTARABINE [Suspect]
     Route: 065
     Dates: start: 20110303
  3. CASPOFUNGIN ACETATE [Concomitant]
  4. CYTARABINE [Suspect]
     Route: 065
  5. VORICONAZOLE [Concomitant]
  6. IDARUBICIN HCL [Suspect]
     Route: 065
  7. CYTARABINE [Suspect]
     Route: 065
     Dates: start: 20110406
  8. CYTARABINE [Suspect]
     Route: 065
     Dates: start: 20110502
  9. IDARUBICIN HCL [Suspect]
     Route: 065
     Dates: start: 20110303
  10. IDARUBICIN HCL [Suspect]
     Route: 065
     Dates: start: 20110406
  11. VESANOID [Suspect]
     Route: 065

REACTIONS (2)
  - RETINOIC ACID SYNDROME [None]
  - FEBRILE NEUTROPENIA [None]
